FAERS Safety Report 20570582 (Version 5)
Quarter: 2023Q4

REPORT INFORMATION
  Report Type: Spontaneous
  Country: US (occurrence: US)
  Receive Date: 20220309
  Receipt Date: 20231117
  Transmission Date: 20240109
  Serious: Yes (Hospitalization, Disabling, Other)
  Sender: FDA-Public Use
  Company Number: US-ORGANON-O2203USA000783

PATIENT
  Sex: Male
  Weight: 138.32 kg

DRUGS (2)
  1. SINGULAIR [Suspect]
     Active Substance: MONTELUKAST SODIUM
     Indication: Asthma
     Dosage: 10 MG PO AT HS
     Route: 048
     Dates: start: 1998, end: 202205
  2. SINGULAIR [Suspect]
     Active Substance: MONTELUKAST SODIUM
     Indication: Hypersensitivity

REACTIONS (39)
  - Neuropsychological symptoms [Not Recovered/Not Resolved]
  - Back injury [Unknown]
  - Major depression [Not Recovered/Not Resolved]
  - Cyclothymic disorder [Unknown]
  - Behaviour disorder [Unknown]
  - Attention deficit hyperactivity disorder [Unknown]
  - Paranoia [Not Recovered/Not Resolved]
  - Impulse-control disorder [Unknown]
  - Adjustment disorder with disturbance of conduct [Recovering/Resolving]
  - Anger [Recovering/Resolving]
  - Sleep disorder [Not Recovered/Not Resolved]
  - Dysphemia [Not Recovered/Not Resolved]
  - Aggression [Not Recovered/Not Resolved]
  - Suicidal ideation [Not Recovered/Not Resolved]
  - Hostility [Not Recovered/Not Resolved]
  - Skull fracture [Unknown]
  - Radius fracture [Unknown]
  - Road traffic accident [Unknown]
  - Concussion [Unknown]
  - Fall [Unknown]
  - Obesity [Unknown]
  - Chest pain [Unknown]
  - Tension headache [Unknown]
  - Lower respiratory tract congestion [Unknown]
  - Cough [Recovered/Resolved]
  - Headache [Unknown]
  - Irritability [Unknown]
  - Somnolence [Unknown]
  - Asthma [Unknown]
  - Anxiety [Unknown]
  - Back pain [Unknown]
  - Pain in extremity [Unknown]
  - Intervertebral disc degeneration [Unknown]
  - Lumbar spinal stenosis [Unknown]
  - Spinal osteoarthritis [Unknown]
  - Intervertebral disc displacement [Unknown]
  - Intervertebral disc protrusion [Unknown]
  - Product prescribing issue [Unknown]
  - Incorrect dose administered [Unknown]

NARRATIVE: CASE EVENT DATE: 19980101
